FAERS Safety Report 10428927 (Version 1)
Quarter: 2014Q3

REPORT INFORMATION
  Report Type: Spontaneous
  Country: SG (occurrence: SG)
  Receive Date: 20140904
  Receipt Date: 20140904
  Transmission Date: 20150326
  Serious: Yes (Hospitalization, Other)
  Sender: FDA-Public Use
  Company Number: SG-UCBSA-2014010862

PATIENT
  Age: 68 Year
  Sex: Male

DRUGS (2)
  1. OMEPRAZOLE. [Suspect]
     Active Substance: OMEPRAZOLE
  2. BACTRIM [Suspect]
     Active Substance: SULFAMETHOXAZOLE\TRIMETHOPRIM
     Dosage: UNK

REACTIONS (4)
  - Transaminases increased [Unknown]
  - Rash maculo-papular [Unknown]
  - Drug reaction with eosinophilia and systemic symptoms [Unknown]
  - Renal failure acute [Unknown]

NARRATIVE: CASE EVENT DATE: 20140613
